FAERS Safety Report 23256153 (Version 1)
Quarter: 2023Q4

REPORT INFORMATION
  Report Type: Spontaneous
  Country: HR (occurrence: HR)
  Receive Date: 20231204
  Receipt Date: 20231204
  Transmission Date: 20240110
  Serious: Yes (Other)
  Sender: FDA-Public Use
  Company Number: None

PATIENT
  Sex: Female

DRUGS (2)
  1. DIAZEPAM [Suspect]
     Active Substance: DIAZEPAM
     Dosage: 300 MG, QD
     Route: 048
     Dates: start: 20231008, end: 20231008
  2. ZOLPIDEM TARTRATE [Suspect]
     Active Substance: ZOLPIDEM TARTRATE
     Dosage: 200 MG, QD
     Route: 048
     Dates: start: 20231008, end: 20231008

REACTIONS (5)
  - Dysarthria [Unknown]
  - Suicide attempt [Unknown]
  - Slow speech [Unknown]
  - Somnolence [Unknown]
  - Intentional overdose [Unknown]

NARRATIVE: CASE EVENT DATE: 20231008
